FAERS Safety Report 10074517 (Version 1)
Quarter: 2014Q2

REPORT INFORMATION
  Report Type: Spontaneous
  Country: US (occurrence: US)
  Receive Date: 20140411
  Receipt Date: 20140411
  Transmission Date: 20141212
  Serious: No
  Sender: FDA-Public Use
  Company Number: US-SA-2013SA118849

PATIENT
  Age: 65 Year
  Sex: Male

DRUGS (4)
  1. ALLEGRA D [Suspect]
  2. ANTIBIOTICS [Concomitant]
  3. ALKA-SELTZER [Concomitant]
     Indication: DYSPEPSIA
  4. ANTIHYPERTENSIVES [Concomitant]

REACTIONS (1)
  - Somnolence [Unknown]
